FAERS Safety Report 6305877-0 (Version None)
Quarter: 2009Q3

REPORT INFORMATION
  Report Type: 
  Country: None (occurrence: None)
  Receive Date: 20090812
  Receipt Date: 20090806
  Transmission Date: 20100115
  Serious: Yes (Disabling)
  Sender: FDA-Public Use
  Company Number: US-ASTRAZENECA-2009SE07383

PATIENT
  Age: 63 Year
  Sex: Male

DRUGS (9)
  1. CRESTOR [Suspect]
     Route: 048
     Dates: start: 20090401, end: 20090802
  2. ZETIA [Concomitant]
  3. SYMBICORT [Concomitant]
     Dosage: 160/4.5 UG
     Route: 055
  4. LISINOPRIL [Concomitant]
  5. ZYRTEC [Concomitant]
  6. OMNARIS [Concomitant]
     Dosage: DAILY
  7. FLOMAX [Concomitant]
  8. TOPROL-XL [Concomitant]
  9. NEXIUM [Concomitant]

REACTIONS (2)
  - TENDON INJURY [None]
  - TENDON RUPTURE [None]
